FAERS Safety Report 7794667-8 (Version None)
Quarter: 2011Q3

REPORT INFORMATION
  Report Type: 
  Country: None (occurrence: None)
  Receive Date: 20110930
  Receipt Date: 20110922
  Transmission Date: 20111222
  Serious: Yes (Hospitalization)
  Sender: FDA-Public Use
  Company Number: WAES 1109USA01397

PATIENT
  Age: 88 Year
  Sex: Male

DRUGS (2)
  1. GLIMEPIRIDE [Concomitant]
  2. JANUVIA [Suspect]
     Indication: TYPE 2 DIABETES MELLITUS
     Dosage: 50 MG/DAILY PO
     Route: 048
     Dates: start: 20100706, end: 20101008

REACTIONS (2)
  - CEREBRAL INFARCTION [None]
  - DISEASE RECURRENCE [None]
